FAERS Safety Report 8285879-8 (Version None)
Quarter: 2012Q2

REPORT INFORMATION
  Report Type: 
  Country: None (occurrence: None)
  Receive Date: 20120413
  Receipt Date: 20120330
  Transmission Date: 20120825
  Serious: Yes (Hospitalization, Other)
  Sender: FDA-Public Use
  Company Number: CHPA2012US006854

PATIENT
  Age: 39 Year
  Sex: Female

DRUGS (5)
  1. NICOTINE [Suspect]
     Dosage: 14 MG, ONCE/SINGLE
     Route: 062
     Dates: start: 20120328, end: 20120328
  2. CLONOPIN [Concomitant]
     Indication: ANXIETY
     Dosage: UNK, BID
  3. TOPAMAX [Concomitant]
     Indication: MOOD SWINGS
     Dosage: UNK, BID
  4. LAMICTAL [Concomitant]
     Indication: DEPRESSION
     Dosage: 100 MG, UNK
  5. NICOTINE [Suspect]
     Indication: SMOKING CESSATION THERAPY
     Dosage: 21 MG, QD
     Route: 062
     Dates: start: 20120326

REACTIONS (6)
  - MIGRAINE [None]
  - TOBACCO WITHDRAWAL SYMPTOMS [None]
  - INSOMNIA [None]
  - OVERDOSE [None]
  - MANIA [None]
  - TREATMENT NONCOMPLIANCE [None]
